FAERS Safety Report 5682989-6 (Version None)
Quarter: 2008Q1

REPORT INFORMATION
  Report Type: 
  Country: None (occurrence: None)
  Receive Date: 20080327
  Receipt Date: 20080324
  Transmission Date: 20080703
  Serious: No
  Sender: FDA-Public Use
  Company Number: US-BAXTER-2008BH002682

PATIENT
  Sex: Male

DRUGS (1)
  1. HEPARIN SODIUM [Suspect]
     Indication: PROPHYLAXIS
     Dosage: DOSE UNIT:UNKNOWN
     Route: 065

REACTIONS (9)
  - BLOOD PRESSURE DECREASED [None]
  - DIZZINESS [None]
  - HEADACHE [None]
  - INCREASED UPPER AIRWAY SECRETION [None]
  - LACRIMATION INCREASED [None]
  - MALAISE [None]
  - NAUSEA [None]
  - STOMACH DISCOMFORT [None]
  - SYNCOPE [None]
